FAERS Safety Report 9016941 (Version 1)
Quarter: 2013Q1

REPORT INFORMATION
  Report Type: Spontaneous
  Country: US (occurrence: US)
  Receive Date: 20130117
  Receipt Date: 20130117
  Transmission Date: 20140127
  Serious: Yes (Other)
  Sender: FDA-Public Use
  Company Number: US-009507513-1201USA04187

PATIENT
  Age: 6 Year
  Sex: Male
  Weight: 24.95 kg

DRUGS (1)
  1. SINGULAIR [Suspect]
     Indication: ASTHMA
     Dosage: 4 MG, HS
     Route: 048
     Dates: start: 20080101, end: 20100101

REACTIONS (8)
  - Abnormal behaviour [Unknown]
  - Abnormal dreams [Unknown]
  - Anxiety [Unknown]
  - Ear infection [Unknown]
  - Fear [Unknown]
  - Hallucination, visual [Unknown]
  - Tremor [Unknown]
  - Hallucination [Unknown]
